FAERS Safety Report 9900932 (Version 1)
Quarter: 2014Q1

REPORT INFORMATION
  Report Type: Spontaneous
  Country: US (occurrence: US)
  Receive Date: 20140217
  Receipt Date: 20140217
  Transmission Date: 20141002
  Serious: No
  Sender: FDA-Public Use
  Company Number: US-ABBVIE-13P-163-1061216-00

PATIENT
  Sex: Male

DRUGS (1)
  1. SIMCOR [Suspect]
     Indication: PRODUCT USED FOR UNKNOWN INDICATION
     Dates: start: 20130214

REACTIONS (8)
  - Flushing [Not Recovered/Not Resolved]
  - Pruritus [Not Recovered/Not Resolved]
  - Localised oedema [Not Recovered/Not Resolved]
  - Erythema [Not Recovered/Not Resolved]
  - Pain [Not Recovered/Not Resolved]
  - Burning sensation [Not Recovered/Not Resolved]
  - Pain in extremity [Recovered/Resolved]
  - Gait disturbance [Recovered/Resolved]
